FAERS Safety Report 7414584-2 (Version None)
Quarter: 2011Q2

REPORT INFORMATION
  Report Type: 
  Country: None (occurrence: None)
  Receive Date: 20110414
  Receipt Date: 20110406
  Transmission Date: 20111010
  Serious: Yes (Death, Hospitalization)
  Sender: FDA-Public Use
  Company Number: MX-BRISTOL-MYERS SQUIBB COMPANY-15664576

PATIENT
  Age: 79 Year
  Sex: Female

DRUGS (1)
  1. COAPROVEL TABS 150MG/12.5MG [Suspect]
     Indication: HYPERTENSION
     Route: 048
     Dates: end: 20090401

REACTIONS (2)
  - HEPATIC NEOPLASM MALIGNANT [None]
  - JAUNDICE [None]
